FAERS Safety Report 16551843 (Version 1)
Quarter: 2019Q3

REPORT INFORMATION
  Report Type: Spontaneous
  Country: ES (occurrence: ES)
  Receive Date: 20190710
  Receipt Date: 20190710
  Transmission Date: 20191004
  Serious: Yes (Other)
  Sender: FDA-Public Use
  Company Number: ES-BRISTOL-MYERS SQUIBB COMPANY-BMS-2019-066316

PATIENT
  Age: 86 Year
  Sex: Male

DRUGS (5)
  1. CLOPIDOGREL STADA [CLOPIDOGREL BESYLATE] [Suspect]
     Active Substance: CLOPIDOGREL BESILATE
     Indication: CAROTID ARTERY STENOSIS
     Dosage: 75 MILLIGRAM, DAILY
     Route: 048
     Dates: start: 20180205
  2. ELIQUIS [Suspect]
     Active Substance: APIXABAN
     Indication: CAROTID ARTERY STENOSIS
     Dosage: 5 MILLIGRAM, Q12H
     Route: 048
     Dates: start: 20181203
  3. ATORVASTATINA ABC [Suspect]
     Active Substance: ATORVASTATIN CALCIUM
     Indication: CAROTID ARTERY STENOSIS
     Dosage: 80 MILLIGRAM, DAILY
     Route: 048
     Dates: start: 20180205
  4. ESOMEPRAZOL STADA [ESOMEPRAZOLE SODIUM] [Suspect]
     Active Substance: ESOMEPRAZOLE SODIUM
     Indication: PROPHYLAXIS
     Dosage: 20 MILLIGRAM, DAILY
     Route: 048
     Dates: start: 20180205
  5. EZETIMIBA RATIOPHARM 10 MG COMPRIMIDOS EFG, 28 COMPRIMIDOS [Suspect]
     Active Substance: EZETIMIBE
     Indication: CAROTID ARTERY STENOSIS
     Dosage: 10 MILLIGRAM, DAILY
     Route: 048
     Dates: start: 20180205

REACTIONS (2)
  - Musculoskeletal pain [Not Recovered/Not Resolved]
  - Intentional product use issue [Unknown]

NARRATIVE: CASE EVENT DATE: 20190529
